FAERS Safety Report 20068243 (Version 2)
Quarter: 2023Q2

REPORT INFORMATION
  Report Type: Spontaneous
  Country: US (occurrence: US)
  Receive Date: 20211115
  Receipt Date: 20230601
  Transmission Date: 20230721
  Serious: Yes (Other)
  Sender: FDA-Public Use
  Company Number: US-JNJFOC-20211110442

PATIENT
  Age: 8 Decade
  Sex: Female

DRUGS (2)
  1. ELMIRON [Suspect]
     Active Substance: PENTOSAN POLYSULFATE SODIUM
     Indication: Cystitis interstitial
     Route: 048
     Dates: start: 2005, end: 20181201
  2. ELMIRON [Suspect]
     Active Substance: PENTOSAN POLYSULFATE SODIUM
     Route: 048
     Dates: end: 2019

REACTIONS (1)
  - Pigmentary maculopathy [Not Recovered/Not Resolved]

NARRATIVE: CASE EVENT DATE: 20180101
